FAERS Safety Report 22660143 (Version 1)
Quarter: 2023Q2

REPORT INFORMATION
  Report Type: Spontaneous
  Country: US (occurrence: None)
  Receive Date: 20230630
  Receipt Date: 20230630
  Transmission Date: 20230722
  Serious: No
  Sender: FDA-Public Use
  Company Number: None

PATIENT
  Age: 40 Year
  Sex: Male
  Weight: 97.52 kg

DRUGS (1)
  1. HUMIRA [Suspect]
     Active Substance: ADALIMUMAB
     Indication: Psoriasis
     Dosage: INJECT 40MG SUBCUTANEOUSLY EVERY 2 WEEKS AS DIRECTED
     Route: 058
     Dates: start: 202303

REACTIONS (2)
  - Nasopharyngitis [None]
  - Sinusitis [None]
